FAERS Safety Report 18491161 (Version 7)
Quarter: 2020Q4

REPORT INFORMATION
  Report Type: Spontaneous
  Country: SK (occurrence: SK)
  Receive Date: 20201111
  Receipt Date: 20201218
  Transmission Date: 20210114
  Serious: Yes (Death, Life-Threatening, Hospitalization, Other)
  Sender: FDA-Public Use
  Company Number: SK-OTSUKA-2020_027870

PATIENT
  Age: 61 Year
  Sex: Female

DRUGS (22)
  1. QUETIAPINE. [Suspect]
     Active Substance: QUETIAPINE
     Indication: SCHIZOAFFECTIVE DISORDER DEPRESSIVE TYPE
     Dosage: UNK
     Route: 065
  2. FOSFOMYCIN [Concomitant]
     Active Substance: FOSFOMYCIN
     Indication: KLEBSIELLA INFECTION
     Dosage: UNK
     Route: 065
  3. FOSFOMYCIN [Concomitant]
     Active Substance: FOSFOMYCIN
     Indication: URINARY TRACT INFECTION
  4. LACTULOSE. [Concomitant]
     Active Substance: LACTULOSE
     Indication: LAXATIVE SUPPORTIVE CARE
     Dosage: UNK
     Route: 065
  5. CEFOTAXIME [Concomitant]
     Active Substance: CEFOTAXIME SODIUM
     Indication: RESPIRATORY DISORDER PROPHYLAXIS
     Dosage: UNK
     Route: 065
  6. MEROPENEM. [Concomitant]
     Active Substance: MEROPENEM
     Indication: URINARY TRACT INFECTION
  7. ARIPIPRAZOLE. [Suspect]
     Active Substance: ARIPIPRAZOLE
     Indication: PSYCHOTIC DISORDER
  8. ESCITALOPRAM [Suspect]
     Active Substance: ESCITALOPRAM OXALATE
     Indication: ANTIDEPRESSANT THERAPY
  9. TIAPRID [Suspect]
     Active Substance: TIAPRIDE HYDROCHLORIDE
     Indication: PSYCHOTIC DISORDER
  10. HEPARIN [Concomitant]
     Active Substance: HEPARIN SODIUM
     Indication: DEEP VEIN THROMBOSIS
     Dosage: UNK
     Route: 065
  11. ESCITALOPRAM [Suspect]
     Active Substance: ESCITALOPRAM OXALATE
     Indication: SCHIZOAFFECTIVE DISORDER DEPRESSIVE TYPE
     Dosage: UNK
     Route: 065
  12. SODIUM PICOSULFATE [Concomitant]
     Active Substance: SODIUM PICOSULFATE
     Indication: PRODUCT USED FOR UNKNOWN INDICATION
     Dosage: UNK
     Route: 065
  13. METRONIDAZOLE. [Concomitant]
     Active Substance: METRONIDAZOLE
     Indication: RESPIRATORY DISORDER PROPHYLAXIS
     Dosage: UNK
     Route: 065
  14. HEPARIN [Concomitant]
     Active Substance: HEPARIN SODIUM
     Indication: PROPHYLAXIS
  15. DIAZEPAM. [Suspect]
     Active Substance: DIAZEPAM
     Indication: ANXIOLYTIC THERAPY
  16. METOCLOPRAMIDE. [Concomitant]
     Active Substance: METOCLOPRAMIDE
     Indication: LAXATIVE SUPPORTIVE CARE
     Dosage: UNK
     Route: 065
  17. ARIPIPRAZOLE. [Suspect]
     Active Substance: ARIPIPRAZOLE
     Indication: SCHIZOAFFECTIVE DISORDER DEPRESSIVE TYPE
     Dosage: UNK
     Route: 065
  18. DIAZEPAM. [Suspect]
     Active Substance: DIAZEPAM
     Indication: SCHIZOAFFECTIVE DISORDER DEPRESSIVE TYPE
     Dosage: UNK
     Route: 065
  19. TIAPRID [Suspect]
     Active Substance: TIAPRIDE HYDROCHLORIDE
     Indication: SCHIZOAFFECTIVE DISORDER DEPRESSIVE TYPE
     Dosage: UNK
     Route: 065
  20. ITOPRIDE [Concomitant]
     Active Substance: ITOPRIDE
     Indication: PRODUCT USED FOR UNKNOWN INDICATION
     Dosage: UNK
     Route: 065
  21. MEROPENEM. [Concomitant]
     Active Substance: MEROPENEM
     Indication: KLEBSIELLA INFECTION
     Dosage: UNK
     Route: 065
  22. QUETIAPINE. [Suspect]
     Active Substance: QUETIAPINE
     Indication: PSYCHOTIC DISORDER

REACTIONS (20)
  - Large intestine perforation [Fatal]
  - Abnormal faeces [Fatal]
  - Drug therapy [Fatal]
  - C-reactive protein increased [Unknown]
  - Rectal ulcer [Not Recovered/Not Resolved]
  - Peritonitis [Fatal]
  - Constipation [Fatal]
  - Tissue infiltration [Fatal]
  - Psychomotor retardation [Unknown]
  - Rectal ulcer [Fatal]
  - Intestinal dilatation [Fatal]
  - Product use in unapproved indication [Unknown]
  - Hypotension [Unknown]
  - Faecaloma [Fatal]
  - Lethargy [Unknown]
  - Mucosal ulceration [Fatal]
  - Rectal haemorrhage [Fatal]
  - Abdominal distension [Fatal]
  - Altered state of consciousness [Unknown]
  - Urinary tract infection [Recovered/Resolved]
